FAERS Safety Report 8215730-3 (Version None)
Quarter: 2012Q1

REPORT INFORMATION
  Report Type: 
  Country: None (occurrence: None)
  Receive Date: 20120316
  Receipt Date: 20120313
  Transmission Date: 20120608
  Serious: Yes (Hospitalization)
  Sender: FDA-Public Use
  Company Number: US-FRI-1000028409

PATIENT
  Age: 67 Year
  Sex: Female

DRUGS (8)
  1. ASPIRIN [Suspect]
     Indication: HYPERTENSION
  2. LISINOPRIL [Concomitant]
  3. SPIRIVA [Concomitant]
  4. ASPIRIN [Suspect]
     Indication: CAROTID ENDARTERECTOMY
  5. DALIRESP [Suspect]
     Indication: CHRONIC OBSTRUCTIVE PULMONARY DISEASE
     Dosage: 500 MCG
     Dates: start: 20120125, end: 20120101
  6. ASPIRIN [Suspect]
     Indication: HYPERLIPIDAEMIA
     Dosage: 325 MG
     Dates: end: 20120101
  7. ADVAIR DISKUS 100/50 [Concomitant]
  8. VENTOLIN [Concomitant]

REACTIONS (3)
  - DIVERTICULUM [None]
  - DYSPNOEA [None]
  - BLISTER [None]
